FAERS Safety Report 6395378-6 (Version None)
Quarter: 2009Q4

REPORT INFORMATION
  Report Type: 
  Country: None (occurrence: None)
  Receive Date: 20091009
  Receipt Date: 20090930
  Transmission Date: 20100525
  Serious: Yes (Hospitalization)
  Sender: FDA-Public Use
  Company Number: JP-ELI_LILLY_AND_COMPANY-JP200910000954

PATIENT
  Weight: 3.168 kg

DRUGS (7)
  1. HUMALOG [Suspect]
     Dosage: UNK, AS NEEDED
     Route: 064
     Dates: start: 20060101
  2. HUMALOG [Suspect]
     Dosage: UNK, 3/D
     Route: 064
  3. PENFILL R [Concomitant]
     Dosage: 8-7-7 U, 3/D
     Route: 064
     Dates: start: 20060101
  4. LANTUS [Concomitant]
     Dosage: 11 U, DAILY (1/D)
     Route: 064
     Dates: start: 20060101
  5. CYCLOSPORINE [Concomitant]
     Route: 064
  6. AZATHIOPRINE [Concomitant]
     Dosage: 25 MG, UNK
     Route: 064
  7. NICARDIPINE HYDROCHLORIDE [Concomitant]
     Dosage: UNK, UNK
     Route: 064

REACTIONS (6)
  - BLOOD CREATININE INCREASED [None]
  - BLOOD UREA INCREASED [None]
  - DRUG EXPOSURE DURING PREGNANCY [None]
  - HYPERBILIRUBINAEMIA NEONATAL [None]
  - HYPOGLYCAEMIA NEONATAL [None]
  - INFANTILE APNOEIC ATTACK [None]
